FAERS Safety Report 7167428-0 (Version None)
Quarter: 2010Q4

REPORT INFORMATION
  Report Type: 
  Country: None (occurrence: None)
  Receive Date: 20101216
  Receipt Date: 20091207
  Transmission Date: 20110411
  Serious: No
  Sender: FDA-Public Use
  Company Number: A0833858A

PATIENT
  Age: 50 Year
  Sex: Male

DRUGS (1)
  1. NICOTINE POLACRILEX [Suspect]

REACTIONS (4)
  - ANXIETY [None]
  - DEPRESSION [None]
  - NICOTINE DEPENDENCE [None]
  - SOMNOLENCE [None]
